FAERS Safety Report 4312828-7 (Version None)
Quarter: 2004Q1

REPORT INFORMATION
  Report Type: 
  Country: None (occurrence: None)
  Receive Date: 20040304
  Receipt Date: 20040220
  Transmission Date: 20041129
  Serious: Yes (Other)
  Sender: FDA-Public Use
  Company Number: 2004-BP-01079YA

PATIENT
  Age: 58 Year
  Sex: Male

DRUGS (9)
  1. HARNAL (TAMSULOSIN)(NR) [Suspect]
     Indication: BENIGN PROSTATIC HYPERPLASIA
     Dosage: 0.2 MG (NR,AM)
     Route: 048
     Dates: start: 20031027, end: 20040115
  2. GOSHAJINKIGAN(GOSHAJINKIGAN)(NR) [Concomitant]
  3. SARPOGRELATE HYDROCHLORIDE(SARFOGRELATE HYDROCHLORIDE)(NR) [Concomitant]
  4. CABAGIN U (METHYLMETHIONINE SULFONIUM CHLORIDE)(NR) [Concomitant]
  5. TRIAZOLAM(TRIAZOLAM)(NR) [Concomitant]
  6. NIZATIDINE(NIZATIDINE)(NR) [Concomitant]
  7. INSULIN(INSULIN)(NR) [Concomitant]
  8. OXETACAINE(OXETACAINE)(NR) [Concomitant]
  9. DIPYRIDAMOLE [Concomitant]

REACTIONS (1)
  - LOSS OF CONSCIOUSNESS [None]
